FAERS Safety Report 12507656 (Version 1)
Quarter: 2016Q2

REPORT INFORMATION
  Report Type: Spontaneous
  Country: US (occurrence: None)
  Receive Date: 20160628
  Receipt Date: 20160628
  Transmission Date: 20160815
  Serious: No
  Sender: FDA-Public Use
  Company Number: None

PATIENT
  Age: 68 Year
  Sex: Female
  Weight: 100.7 kg

DRUGS (19)
  1. AMITRIPTYLINE [Concomitant]
     Active Substance: AMITRIPTYLINE
  2. ULTRACET [Concomitant]
     Active Substance: ACETAMINOPHEN\TRAMADOL HYDROCHLORIDE
  3. PROLIA [Suspect]
     Active Substance: DENOSUMAB
     Indication: OSTEOPOROSIS
     Dosage: INJECTION ONCE EVERY T MONTHS INJECTION
     Dates: start: 20160429, end: 20160429
  4. METHOTREXATE [Concomitant]
     Active Substance: METHOTREXATE
  5. FLOVENT [Suspect]
     Active Substance: FLUTICASONE PROPIONATE
  6. NEXIUM [Concomitant]
     Active Substance: ESOMEPRAZOLE MAGNESIUM
  7. VITAMIN D3 [Concomitant]
     Active Substance: CHOLECALCIFEROL
  8. FUROSEMIDE. [Concomitant]
     Active Substance: FUROSEMIDE
  9. VALSARTAN. [Concomitant]
     Active Substance: VALSARTAN
  10. LEVOTHYROXINE. [Concomitant]
     Active Substance: LEVOTHYROXINE
  11. CENTRUM SILVER [Concomitant]
     Active Substance: MINERALS\VITAMINS
  12. PREDNISONE. [Concomitant]
     Active Substance: PREDNISONE
  13. FOLIC ACID. [Concomitant]
     Active Substance: FOLIC ACID
  14. COMBIVENT [Concomitant]
     Active Substance: ALBUTEROL SULFATE\IPRATROPIUM BROMIDE
  15. ALIGN [Concomitant]
     Active Substance: BIFIDOBACTERIUM LONGUM SUBSP. INFANTIS
  16. REMICADE [Concomitant]
     Active Substance: INFLIXIMAB
  17. BYSTOLIC [Concomitant]
     Active Substance: NEBIVOLOL HYDROCHLORIDE
  18. KRILL OIL [Concomitant]
     Active Substance: DIETARY SUPPLEMENT
  19. METROGEL OINTMENT [Concomitant]

REACTIONS (9)
  - Arthralgia [None]
  - Feeling abnormal [None]
  - Pain [None]
  - Gait disturbance [None]
  - Grip strength decreased [None]
  - Muscular weakness [None]
  - Joint range of motion decreased [None]
  - Myalgia [None]
  - Paraesthesia [None]

NARRATIVE: CASE EVENT DATE: 20160514
